FAERS Safety Report 7348981-0 (Version None)
Quarter: 2011Q1

REPORT INFORMATION
  Report Type: 
  Country: None (occurrence: None)
  Receive Date: 20110314
  Receipt Date: 20110215
  Transmission Date: 20110831
  Serious: No
  Sender: FDA-Public Use
  Company Number: US-B.I. PHARMACEUTICALS,INC./RIDGEFIELD-2011-BP-05711BP

PATIENT
  Sex: Female

DRUGS (6)
  1. ZETIA [Concomitant]
     Indication: BLOOD CHOLESTEROL INCREASED
  2. PRADAXA [Suspect]
     Indication: ATRIAL FIBRILLATION
     Dosage: 300 MG
     Route: 048
     Dates: start: 20110101
  3. ASPIRIN [Concomitant]
     Indication: PROPHYLAXIS
     Dosage: 81 MG
  4. LEVOTHYROXINE SODIUM [Concomitant]
     Indication: HYPOTHYROIDISM
     Dosage: 75 MG
  5. HYDROCHLOROT [Concomitant]
     Indication: HYPERTENSION
     Dosage: 12.5 MG
  6. MALTAC [Concomitant]
     Indication: ATRIAL FIBRILLATION
     Dosage: 800 MG

REACTIONS (1)
  - ALOPECIA [None]
